FAERS Safety Report 19721190 (Version 3)
Quarter: 2021Q4

REPORT INFORMATION
  Report Type: Spontaneous
  Country: US (occurrence: US)
  Receive Date: 20210819
  Receipt Date: 20211111
  Transmission Date: 20220303
  Serious: Yes (Hospitalization, Other)
  Sender: FDA-Public Use
  Company Number: US-BOEHRINGERINGELHEIM-2021-BI-121907

PATIENT
  Age: 62 Year
  Sex: Female

DRUGS (6)
  1. JARDIANCE [Suspect]
     Active Substance: EMPAGLIFLOZIN
     Indication: Type 2 diabetes mellitus
     Dates: start: 20210608, end: 20210617
  2. JARDIANCE [Suspect]
     Active Substance: EMPAGLIFLOZIN
     Indication: Diabetic nephropathy
  3. HYDROCHLOROTHIAZIDE [Concomitant]
     Active Substance: HYDROCHLOROTHIAZIDE
     Indication: Product used for unknown indication
  4. LISINOPRIL [Concomitant]
     Active Substance: LISINOPRIL
     Indication: Product used for unknown indication
  5. METFORMIN [Concomitant]
     Active Substance: METFORMIN HYDROCHLORIDE
     Indication: Product used for unknown indication
  6. INSULIN NOS [Concomitant]
     Active Substance: INSULIN NOS
     Indication: Product used for unknown indication

REACTIONS (17)
  - Renal failure [Recovered/Resolved]
  - Mass excision [Recovered/Resolved]
  - Dehydration [Recovering/Resolving]
  - Necrotising soft tissue infection [Unknown]
  - Urinary retention [Unknown]
  - Hypovolaemia [Unknown]
  - Iron deficiency anaemia [Unknown]
  - Coronary artery disease [Unknown]
  - Apnoea [Unknown]
  - Fournier^s gangrene [Unknown]
  - Pneumonia [Recovered/Resolved]
  - Urinary incontinence [Unknown]
  - Bacterial infection [Unknown]
  - Feeling abnormal [Recovered/Resolved]
  - Abdominal discomfort [Unknown]
  - Asthenia [Unknown]
  - Autoscopy [Unknown]

NARRATIVE: CASE EVENT DATE: 20210601
